FAERS Safety Report 26124758 (Version 1)
Quarter: 2025Q4

REPORT INFORMATION
  Report Type: Spontaneous
  Country: US (occurrence: US)
  Receive Date: 20251205
  Receipt Date: 20251205
  Transmission Date: 20260118
  Serious: No
  Sender: ALEXION PHARMACEUTICALS
  Company Number: US-ASTRAZENECA-202511NAM028171US

PATIENT

DRUGS (3)
  1. FULVESTRANT [Suspect]
     Active Substance: FULVESTRANT
     Dosage: UNK
     Route: 065
  2. FULVESTRANT [Suspect]
     Active Substance: FULVESTRANT
  3. CAPIVASERTIB [Suspect]
     Active Substance: CAPIVASERTIB
     Dosage: UNK
     Route: 065

REACTIONS (2)
  - Rash [Unknown]
  - Adverse event [Unknown]
